FAERS Safety Report 9192096 (Version 1)
Quarter: 2013Q1

REPORT INFORMATION
  Report Type: Spontaneous
  Country: US (occurrence: None)
  Receive Date: 20120703
  Receipt Date: 20120703
  Transmission Date: 20140127
  Serious: No
  Sender: FDA-Public Use
  Company Number: PHEH2012US008315

PATIENT
  Age: 49 Year
  Sex: Female
  Weight: 59 kg

DRUGS (4)
  1. GILENYA (FTY) CAPSULE, 0.5MG [Suspect]
     Indication: RELAPSING-REMITTING MULTIPLE SCLEROSIS
     Route: 048
     Dates: start: 20120327, end: 20120412
  2. GABAPENTIN (GABAPENTIN) [Concomitant]
  3. HYDROCODONE (HYDROCODONE) [Concomitant]
  4. VITAMIN B12 (CYANCOBALAMIN) [Concomitant]

REACTIONS (3)
  - Muscle fatigue [None]
  - Hypoaesthesia [None]
  - Muscular weakness [None]
